FAERS Safety Report 23379062 (Version 1)
Quarter: 2024Q1

REPORT INFORMATION
  Report Type: Spontaneous
  Country: US (occurrence: US)
  Receive Date: 20240108
  Receipt Date: 20240108
  Transmission Date: 20240410
  Serious: Yes (Other)
  Sender: FDA-Public Use
  Company Number: US-ORGANON-O2312USA000119

PATIENT
  Sex: Female
  Weight: 69.841 kg

DRUGS (7)
  1. NEXPLANON [Suspect]
     Active Substance: ETONOGESTREL
     Dosage: 1 IMPLANT
     Route: 059
     Dates: start: 20230418, end: 20231130
  2. PEPCID [Concomitant]
     Active Substance: FAMOTIDINE
     Dosage: 1 TABLET (20 MG) BY MOUTH EVERY 12 (TWELVE) HOURS
     Route: 048
  3. PROTONIX [Concomitant]
     Active Substance: PANTOPRAZOLE SODIUM
     Dosage: 1 TABLET (40 MG) BY MOUTH DAILY
     Route: 048
  4. ZOFRAN [Concomitant]
     Active Substance: ONDANSETRON HYDROCHLORIDE
     Indication: Nausea
     Dosage: 1 TABLET (4 MG) BY MOUTH EVERY 8 (EIGHT) HOURS AS NEEDED.
     Route: 048
  5. PRILOSEC [Concomitant]
     Active Substance: OMEPRAZOLE MAGNESIUM
     Dosage: 1 CAPSULE (20 MG) BY MOUTH DAILY
     Route: 048
  6. BACTRIM DS [Concomitant]
     Active Substance: SULFAMETHOXAZOLE\TRIMETHOPRIM
     Dosage: 2 TABLETS BY MOUTH 2 (TWO) TIMES DAILY FOR 7 DAYS
     Route: 048
  7. KEFLEX [Concomitant]
     Active Substance: CEPHALEXIN
     Dosage: 1 CAPSULE BY MOUTH 4 (FOUR) TIMES DAILY FOR 7 DAYS
     Route: 048

REACTIONS (5)
  - Device breakage [Recovered/Resolved]
  - Device kink [Recovered/Resolved]
  - Mood swings [Unknown]
  - Intermenstrual bleeding [Unknown]
  - No adverse event [Unknown]

NARRATIVE: CASE EVENT DATE: 20230101
